FAERS Safety Report 16451595 (Version 2)
Quarter: 2019Q4

REPORT INFORMATION
  Report Type: Spontaneous
  Country: US (occurrence: US)
  Receive Date: 20190619
  Receipt Date: 20191111
  Transmission Date: 20200122
  Serious: No
  Sender: FDA-Public Use
  Company Number: US-ALLERGAN-1903537US

PATIENT
  Age: 40 Year
  Sex: Female

DRUGS (1)
  1. LO LOESTRIN FE [Suspect]
     Active Substance: ETHINYL ESTRADIOL\NORETHINDRONE ACETATE
     Indication: PRODUCT USED FOR UNKNOWN INDICATION
     Dosage: FOLLOWING THE BLISTER PACK AS DIRECTED
     Route: 048
     Dates: start: 20190121, end: 20190122

REACTIONS (2)
  - Lip swelling [Recovered/Resolved]
  - Urticaria [Recovered/Resolved]

NARRATIVE: CASE EVENT DATE: 20190121
